FAERS Safety Report 24293075 (Version 1)
Quarter: 2024Q3

REPORT INFORMATION
  Report Type: Spontaneous
  Country: US (occurrence: None)
  Receive Date: 20240906
  Receipt Date: 20240906
  Transmission Date: 20241016
  Serious: No
  Sender: DOMPE FARMACEUTICI
  Company Number: US-FARMAPROD-202308-202311-3404

PATIENT
  Sex: Female

DRUGS (15)
  1. OXERVATE [Suspect]
     Active Substance: CENEGERMIN-BKBJ
     Indication: Neurotrophic keratopathy
     Route: 047
     Dates: start: 20231107
  2. OXERVATE [Suspect]
     Active Substance: CENEGERMIN-BKBJ
  3. NITROFURANTOIN [Concomitant]
     Active Substance: NITROFURANTOIN
  4. VITAMIN C [Concomitant]
     Active Substance: ASCORBIC ACID
  5. LOTEPREDNOL ETABONATE [Concomitant]
     Active Substance: LOTEPREDNOL ETABONATE
  6. CIPROFLOXACIN HYDROCHLORIDE [Concomitant]
     Active Substance: CIPROFLOXACIN HYDROCHLORIDE
  7. DOXYCYCLINE HYCLATE [Concomitant]
     Active Substance: DOXYCYCLINE HYCLATE
  8. ACETAMINOPHEN\HYDROCODONE [Concomitant]
     Active Substance: ACETAMINOPHEN\HYDROCODONE
  9. GABAPENTIN [Concomitant]
     Active Substance: GABAPENTIN
  10. VALACYCLOVIR [Concomitant]
     Active Substance: VALACYCLOVIR HYDROCHLORIDE
  11. NEXLETOL [Concomitant]
     Active Substance: BEMPEDOIC ACID
  12. CLOPIDOGREL [Concomitant]
     Active Substance: CLOPIDOGREL BISULFATE
  13. METOPROLOL SUCCINATE [Concomitant]
     Active Substance: METOPROLOL SUCCINATE
  14. LEVOTHYROXINE SODIUM [Concomitant]
     Active Substance: LEVOTHYROXINE SODIUM
  15. ARTIFICIAL TEARS [Concomitant]

REACTIONS (4)
  - Periorbital pain [Unknown]
  - Eye pain [Unknown]
  - Eye irritation [Unknown]
  - Inappropriate schedule of product administration [Unknown]
